FAERS Safety Report 5693201-6 (Version None)
Quarter: 2008Q2

REPORT INFORMATION
  Report Type: 
  Country: None (occurrence: None)
  Receive Date: 20080403
  Receipt Date: 20080331
  Transmission Date: 20081010
  Serious: Yes (Disabling)
  Sender: FDA-Public Use
  Company Number: GB-ALLERGAN-0803735US

PATIENT
  Sex: Female

DRUGS (2)
  1. DYSPORT [Suspect]
     Indication: DYSTONIA
     Dosage: 500 UNITS, SINGLE
     Route: 030
     Dates: start: 19910101, end: 20070927
  2. NEUROBLOC [Suspect]

REACTIONS (3)
  - DRUG INEFFECTIVE [None]
  - NEUTRALISING ANTIBODIES [None]
  - TORTICOLLIS [None]
